FAERS Safety Report 18981904 (Version 1)
Quarter: 2021Q1

REPORT INFORMATION
  Report Type: Spontaneous
  Country: GB (occurrence: GB)
  Receive Date: 20210308
  Receipt Date: 20210308
  Transmission Date: 20210420
  Serious: Yes (Other)
  Sender: FDA-Public Use
  Company Number: GB-MYLANLABS-2021M1013668

PATIENT
  Age: 33 Year
  Sex: Female
  Weight: 65 kg

DRUGS (9)
  1. NOVORAPID [Concomitant]
     Active Substance: INSULIN ASPART
     Indication: ILL-DEFINED DISORDER
     Dosage: UNK (8/14/10?12)
     Dates: start: 20200706
  2. GLUCOSE [Concomitant]
     Active Substance: DEXTROSE
     Indication: ILL-DEFINED DISORDER
     Dosage: UNK (USE AS DIRECTED)
     Dates: start: 20200706
  3. BENZOYL PEROXIDE. [Concomitant]
     Active Substance: BENZOYL PEROXIDE
     Indication: ILL-DEFINED DISORDER
     Dosage: UNK, QD (APPLY THINLY ONCE DAILY IN THE EVENING)
     Dates: start: 20210301
  4. FERROUS FUMARATE [Concomitant]
     Active Substance: FERROUS FUMARATE
     Indication: ILL-DEFINED DISORDER
     Dosage: 1 DOSAGE FORM, TID/TAKE ONE TABLET THREE TIMES A DAY
     Dates: start: 20210224
  5. ADAPALENE. [Concomitant]
     Active Substance: ADAPALENE
     Indication: ILL-DEFINED DISORDER
     Dosage: UNK UNK, QD (APPLY ONCE DAILY)
     Dates: start: 20210222
  6. NIFEDIPINE. [Concomitant]
     Active Substance: NIFEDIPINE
     Indication: ILL-DEFINED DISORDER
     Dosage: UNK, TID (TAKE ONE 3 TIMES/DAY)
     Dates: start: 20210225
  7. TOUJEO [Concomitant]
     Active Substance: INSULIN GLARGINE
     Indication: ILL-DEFINED DISORDER
     Dosage: UNK (USE AS DIRECTED BY YOUR DIABETIC SPECIALIST ONC...)
     Dates: start: 20200706
  8. DOXYCYCLINE. [Suspect]
     Active Substance: DOXYCYCLINE
     Indication: ACNE
     Dosage: 1 DOSAGE FORM, QD
     Dates: start: 20210222
  9. GLUCAGON. [Concomitant]
     Active Substance: GLUCAGON
     Indication: ILL-DEFINED DISORDER
     Dosage: UNK (USE AS DIRECTED)
     Dates: start: 20200706

REACTIONS (2)
  - Eye swelling [Recovering/Resolving]
  - Eye pain [Recovering/Resolving]

NARRATIVE: CASE EVENT DATE: 20210301
